FAERS Safety Report 7652984-6 (Version None)
Quarter: 2011Q3

REPORT INFORMATION
  Report Type: 
  Country: None (occurrence: None)
  Receive Date: 20110803
  Receipt Date: 20110801
  Transmission Date: 20111222
  Serious: Yes (Other)
  Sender: FDA-Public Use
  Company Number: US-PFIZER INC-2011175629

PATIENT
  Sex: Male
  Weight: 65.8 kg

DRUGS (4)
  1. TOPROL-XL [Concomitant]
     Indication: CARDIAC DISORDER
     Dosage: UNK
  2. ZETIA [Suspect]
     Dosage: UNK
  3. LIPITOR [Suspect]
     Indication: BLOOD CHOLESTEROL INCREASED
     Dosage: 40 MG, 1X/DAY
     Dates: start: 20031201, end: 20060714
  4. BENICAR HCT [Concomitant]
     Indication: CARDIAC DISORDER
     Dosage: UNK

REACTIONS (9)
  - PARALYSIS [None]
  - FUNCTIONAL GASTROINTESTINAL DISORDER [None]
  - RENAL DISORDER [None]
  - COLITIS [None]
  - COORDINATION ABNORMAL [None]
  - BALANCE DISORDER [None]
  - MEMORY IMPAIRMENT [None]
  - DYSPNOEA [None]
  - GASTRITIS [None]
